FAERS Safety Report 11157696 (Version 2)
Quarter: 2015Q2

REPORT INFORMATION
  Report Type: Spontaneous
  Country: NL (occurrence: NL)
  Receive Date: 20150603
  Receipt Date: 20150608
  Transmission Date: 20150821
  Serious: Yes (Death, Hospitalization, Other)
  Sender: FDA-Public Use
  Company Number: NL-TEVA-565029ISR

PATIENT
  Age: 72 Year
  Sex: Female

DRUGS (4)
  1. PLAQUENIL [Concomitant]
     Active Substance: HYDROXYCHLOROQUINE SULFATE
     Indication: RHEUMATOID ARTHRITIS
     Dosage: 200 MILLIGRAM DAILY; 1 ONCE A WEEK ONE PIECE, EXTRA INFO: 200 MG
     Route: 048
     Dates: start: 2012, end: 20150428
  2. OMEPRAZOL CAPSULE MGA 20MG [Concomitant]
     Dosage: 20 MILLIGRAM DAILY; 1 ONCE DAILY ONE PIECE, EXTRA INFO: 20, PROLONGED-RELEASE CAPSULE
     Route: 048
  3. CALCI CHEW D3 KAUWTABLET  500MG/800IE [Concomitant]
     Dosage: 1 DOSAGE FORMS DAILY; ONE DAILY ONE PIECE
     Route: 048
  4. METHOTREXATE [Suspect]
     Active Substance: METHOTREXATE
     Indication: RHEUMATOID ARTHRITIS
     Dosage: 3.5714 MILLIGRAM DAILY; ONCE A WEEK ONE PIECE, EXTRA INFO: WEEKLY DOSE 25 MG
     Route: 048
     Dates: start: 1992, end: 20150428

REACTIONS (4)
  - Pneumonia aspiration [Fatal]
  - Ileus [Fatal]
  - Polyneuropathy [Unknown]
  - Sepsis [Fatal]

NARRATIVE: CASE EVENT DATE: 20150428
